FAERS Safety Report 14754553 (Version 1)
Quarter: 2018Q2

REPORT INFORMATION
  Report Type: Spontaneous
  Country: US (occurrence: US)
  Receive Date: 20180413
  Receipt Date: 20180413
  Transmission Date: 20180711
  Serious: Yes (Death, Hospitalization, Other)
  Sender: FDA-Public Use
  Company Number: US-UNICHEM PHARMACEUTICALS (USA) INC-UCM201804-000103

PATIENT
  Age: 38 Year
  Sex: Female

DRUGS (8)
  1. PERPHENAZINE. [Concomitant]
     Active Substance: PERPHENAZINE
  2. CYCLOBENZAPRINE. [Concomitant]
     Active Substance: CYCLOBENZAPRINE
     Indication: NECK PAIN
  3. DEPAKOTE [Concomitant]
     Active Substance: DIVALPROEX SODIUM
  4. DIVALPROEX SODIUM. [Suspect]
     Active Substance: DIVALPROEX SODIUM
  5. SERTRALINE [Concomitant]
     Active Substance: SERTRALINE HYDROCHLORIDE
  6. BROMOCRIPTINE [Concomitant]
     Active Substance: BROMOCRIPTINE
  7. DIVALPROEX SODIUM. [Suspect]
     Active Substance: DIVALPROEX SODIUM
  8. DIPHENHYDRAMINE. [Concomitant]
     Active Substance: DIPHENHYDRAMINE

REACTIONS (6)
  - Somnolence [Not Recovered/Not Resolved]
  - Bradycardia [Not Recovered/Not Resolved]
  - Hyperammonaemic encephalopathy [Fatal]
  - Brain oedema [Fatal]
  - Confusional state [Not Recovered/Not Resolved]
  - Depressed level of consciousness [Not Recovered/Not Resolved]
